FAERS Safety Report 8016457-3 (Version None)
Quarter: 2011Q4

REPORT INFORMATION
  Report Type: 
  Country: None (occurrence: None)
  Receive Date: 20111230
  Receipt Date: 20111228
  Transmission Date: 20120403
  Serious: Yes (Other)
  Sender: FDA-Public Use
  Company Number: DE-ABBOTT-11P-062-0839937-00

PATIENT
  Age: 30 Day
  Sex: Female

DRUGS (10)
  1. VALPROIC ACID [Suspect]
     Indication: PARTIAL SEIZURES
  2. PYRIDOXINE HCL [Concomitant]
  3. PYRIDOXINE HCL [Concomitant]
     Indication: CONVULSION
  4. PHENOBARBITAL TAB [Concomitant]
     Indication: CONVULSION
  5. PHENOBARBITAL TAB [Concomitant]
  6. SULTIAME [Concomitant]
     Indication: CONVULSION
  7. SULTIAME [Concomitant]
  8. SULTIAME [Concomitant]
  9. VALPROIC ACID [Suspect]
     Indication: CONVULSION
  10. PHENOBARBITAL TAB [Concomitant]

REACTIONS (2)
  - OFF LABEL USE [None]
  - RHABDOMYOLYSIS [None]
